FAERS Safety Report 17656942 (Version 3)
Quarter: 2021Q1

REPORT INFORMATION
  Report Type: Spontaneous
  Country: CA (occurrence: CA)
  Receive Date: 20200410
  Receipt Date: 20210312
  Transmission Date: 20210419
  Serious: Yes (Hospitalization)
  Sender: FDA-Public Use
  Company Number: CA-SPECGX-T202000718

PATIENT
  Age: 66 Year
  Sex: Female

DRUGS (37)
  1. METHADOSE [Suspect]
     Active Substance: METHADONE HYDROCHLORIDE
     Dosage: 24 MILLIGRAM, 1 EVERY 24 HOURS
     Route: 065
     Dates: start: 2018, end: 2018
  2. HYDROMORPHONE [Suspect]
     Active Substance: HYDROMORPHONE
     Dosage: 0.2 MG/HOURS FOR FIVE DAYS
     Route: 065
     Dates: start: 2018, end: 2018
  3. BUPRENORPHINE/NALOXONE [Suspect]
     Active Substance: BUPRENORPHINE\NALOXONE
     Dosage: 1 MG/0.25 MG EVERY THREE HOURS FOR EIGHT DOSES ONCE DAILY
     Route: 065
     Dates: start: 2018, end: 2018
  4. BUPRENORPHINE/NALOXONE [Suspect]
     Active Substance: BUPRENORPHINE\NALOXONE
     Dosage: 16 MG/4 MG ONCE DAILY
     Route: 060
     Dates: start: 201810
  5. AMLODIPINE [Concomitant]
     Active Substance: AMLODIPINE BESYLATE
     Indication: PRODUCT USED FOR UNKNOWN INDICATION
     Dosage: UNK
     Route: 065
  6. COTRIMOXAZOL [Concomitant]
     Active Substance: SULFAMETHOXAZOLE\TRIMETHOPRIM
     Indication: PRODUCT USED FOR UNKNOWN INDICATION
     Dosage: UNK
     Route: 065
  7. IBUPROFEN. [Suspect]
     Active Substance: IBUPROFEN
     Indication: ANALGESIC THERAPY
     Dosage: UNK
     Route: 065
     Dates: start: 2018
  8. BUSPIRONE [Concomitant]
     Active Substance: BUSPIRONE HYDROCHLORIDE
     Indication: PRODUCT USED FOR UNKNOWN INDICATION
     Dosage: UNK
     Route: 065
  9. POLYETHYLENE GLYCOL [Concomitant]
     Active Substance: POLYETHYLENE GLYCOLS
     Indication: PRODUCT USED FOR UNKNOWN INDICATION
     Dosage: UNK
     Route: 065
  10. KETAMINE [Suspect]
     Active Substance: KETAMINE
     Indication: GENERAL ANAESTHESIA
     Dosage: 60 MILLIGRAM, (5 MG/H FOR 24 HOURS)
     Route: 042
     Dates: start: 2018, end: 2018
  11. KETAMINE [Suspect]
     Active Substance: KETAMINE
     Dosage: 5 MG/ HOURS FOR 24 HOURS
     Route: 065
     Dates: start: 2018, end: 2018
  12. OXYCODONE [Suspect]
     Active Substance: OXYCODONE
     Indication: BACK PAIN
     Dosage: 70 MILLIGRAM, 1 EVERY 24 HOURS (30 MG WITH ADDITIONAL 10 MG AS NEEDED)
     Route: 048
     Dates: start: 201601
  13. OXYCODONE [Suspect]
     Active Substance: OXYCODONE
     Dosage: 135?205 MG (30 MG ER 3XDAILY WITH SUPPLEMENTAL IR AS NEEDED)
     Route: 048
  14. PREGABALIN. [Concomitant]
     Active Substance: PREGABALIN
     Indication: PRODUCT USED FOR UNKNOWN INDICATION
     Dosage: UNK
     Route: 065
  15. METHADOSE [Suspect]
     Active Substance: METHADONE HYDROCHLORIDE
     Indication: PRODUCT USED FOR UNKNOWN INDICATION
     Dosage: 8.0 MILLIGRAM, TID
     Route: 065
     Dates: start: 2018, end: 2018
  16. HYDROMORPHONE [Suspect]
     Active Substance: HYDROMORPHONE
     Dosage: 0.6 MG/H FOR 24 HOURS
     Route: 065
     Dates: start: 2018, end: 2018
  17. LIDOCAINE. [Suspect]
     Active Substance: LIDOCAINE
     Indication: GENERAL ANAESTHESIA
     Dosage: 50 MILLIGRAM, UNK
     Route: 042
     Dates: start: 2018
  18. FENTANYL. [Suspect]
     Active Substance: FENTANYL
     Indication: GENERAL ANAESTHESIA
     Dosage: 250 MICROGRAM
     Route: 042
  19. DOCUSATE SODIUM. [Concomitant]
     Active Substance: DOCUSATE SODIUM
     Indication: PRODUCT USED FOR UNKNOWN INDICATION
     Dosage: UNK
     Route: 065
  20. METHADOSE [Suspect]
     Active Substance: METHADONE HYDROCHLORIDE
     Dosage: 6.0 MILLIGRAM, TID
     Route: 065
     Dates: start: 2018
  21. DEXMEDETOMIDINE. [Suspect]
     Active Substance: DEXMEDETOMIDINE
     Indication: GENERAL ANAESTHESIA
     Dosage: UNK (0.4 PG/KG/H)
     Route: 065
     Dates: start: 2018
  22. BUPRENORPHINE/NALOXONE [Suspect]
     Active Substance: BUPRENORPHINE\NALOXONE
     Dosage: 0.5 MG/0.125 MG EVERY THREE HOURS FOR EIGHT DOSE
     Route: 060
     Dates: start: 2018, end: 2018
  23. CLONIDINE. [Concomitant]
     Active Substance: CLONIDINE
     Indication: PRODUCT USED FOR UNKNOWN INDICATION
     Dosage: UNK
     Route: 065
  24. METFORMIN [Concomitant]
     Active Substance: METFORMIN HYDROCHLORIDE
     Indication: PRODUCT USED FOR UNKNOWN INDICATION
     Dosage: UNK
     Route: 065
  25. METHADOSE [Suspect]
     Active Substance: METHADONE HYDROCHLORIDE
     Dosage: 5.0 MILLIGRAM, TID
     Route: 065
     Dates: start: 2018
  26. GABAPENTIN. [Suspect]
     Active Substance: GABAPENTIN
     Indication: ANALGESIC THERAPY
     Dosage: UNK
     Route: 065
     Dates: start: 2018
  27. FERROUS FUMARATE [Concomitant]
     Active Substance: FERROUS FUMARATE
     Indication: PRODUCT USED FOR UNKNOWN INDICATION
     Dosage: UNK
     Route: 065
  28. KETAMINE [Suspect]
     Active Substance: KETAMINE
     Dosage: 10 MG/ HOURS FOR 24 HOURS
     Route: 065
     Dates: start: 2018, end: 2018
  29. OXYCODONE [Suspect]
     Active Substance: OXYCODONE
     Dosage: 5?10 MG EVERY THREE HOURS AS NEEDED
     Route: 048
  30. BUPRENORPHINE/NALOXONE [Suspect]
     Active Substance: BUPRENORPHINE\NALOXONE
     Indication: DRUG WITHDRAWAL SYNDROME
     Dosage: 0.25/MG/0.0625 MG, EVERY THREE HOURS, FOR EIGHT DOSES,
     Route: 060
     Dates: start: 2018, end: 2018
  31. BUPRENORPHINE/NALOXONE [Suspect]
     Active Substance: BUPRENORPHINE\NALOXONE
     Dosage: 12 MG/3 MG ONCE DAILY
     Route: 060
     Dates: start: 2018, end: 2018
  32. SUFENTANIL [Suspect]
     Active Substance: SUFENTANIL
     Indication: GENERAL ANAESTHESIA
     Dosage: UNK (0.15 PG/KG/N)
     Route: 042
  33. DALTEPARIN [Concomitant]
     Active Substance: DALTEPARIN
     Indication: PRODUCT USED FOR UNKNOWN INDICATION
     Dosage: UNK
     Route: 065
  34. HYDROMORPHONE [Suspect]
     Active Substance: HYDROMORPHONE
     Indication: GENERAL ANAESTHESIA
     Dosage: 4 MILLIGRAM
     Route: 042
     Dates: start: 2018, end: 2018
  35. OXYCODONE [Suspect]
     Active Substance: OXYCODONE
     Dosage: 60 AND 80 MG
     Route: 048
     Dates: end: 201810
  36. ACETAMINOPHEN. [Suspect]
     Active Substance: ACETAMINOPHEN
     Indication: ANALGESIC THERAPY
     Dosage: UNK
     Route: 065
     Dates: start: 2018
  37. SENNOSIDES A+B [Concomitant]
     Active Substance: SENNOSIDES A AND B
     Indication: PRODUCT USED FOR UNKNOWN INDICATION
     Dosage: UNK
     Route: 065

REACTIONS (5)
  - Pain [Recovered/Resolved]
  - Constipation [Unknown]
  - Therapeutic product effect incomplete [Unknown]
  - Withdrawal syndrome [Recovered/Resolved]
  - Therapy partial responder [Unknown]
